FAERS Safety Report 19096718 (Version 1)
Quarter: 2021Q2

REPORT INFORMATION
  Report Type: Report from Study
  Country: BR (occurrence: BR)
  Receive Date: 20210406
  Receipt Date: 20210406
  Transmission Date: 20210717
  Serious: Yes (Disabling, Other)
  Sender: FDA-Public Use
  Company Number: NVSC2021BR072096

PATIENT
  Age: 48 Year
  Sex: Male

DRUGS (3)
  1. METFORMIN [Concomitant]
     Active Substance: METFORMIN HYDROCHLORIDE
     Indication: PRODUCT USED FOR UNKNOWN INDICATION
     Dosage: UNK
     Route: 065
  2. COSENTYX [Suspect]
     Active Substance: SECUKINUMAB
     Indication: PSORIATIC ARTHROPATHY
     Dosage: 1 DF, EVERY 15 DAYS
     Route: 065
     Dates: start: 202010
  3. COSENTYX [Suspect]
     Active Substance: SECUKINUMAB
     Indication: PSORIASIS
     Dosage: 1 DF, EVERY 15 DAYS
     Route: 065
     Dates: start: 202012

REACTIONS (22)
  - Drug ineffective [Unknown]
  - Fatigue [Not Recovered/Not Resolved]
  - Gait inability [Unknown]
  - Psoriasis [Unknown]
  - Joint injury [Unknown]
  - Limb injury [Unknown]
  - Peripheral swelling [Not Recovered/Not Resolved]
  - Psoriatic arthropathy [Unknown]
  - Cartilage injury [Unknown]
  - Musculoskeletal stiffness [Not Recovered/Not Resolved]
  - Inappropriate schedule of product administration [Unknown]
  - Movement disorder [Not Recovered/Not Resolved]
  - Musculoskeletal discomfort [Unknown]
  - Feeling abnormal [Unknown]
  - Skin lesion [Unknown]
  - Myelopathy [Unknown]
  - Swelling [Not Recovered/Not Resolved]
  - Skin exfoliation [Recovered/Resolved with Sequelae]
  - Excessive granulation tissue [Unknown]
  - Erythema [Unknown]
  - Dyspnoea [Unknown]
  - Arthralgia [Not Recovered/Not Resolved]

NARRATIVE: CASE EVENT DATE: 202101
